FAERS Safety Report 6958570-5 (Version None)
Quarter: 2010Q3

REPORT INFORMATION
  Report Type: 
  Country: None (occurrence: None)
  Receive Date: 20100830
  Receipt Date: 20100830
  Transmission Date: 20110219
  Serious: No
  Sender: FDA-Public Use
  Company Number: None

PATIENT
  Age: 28 Year
  Sex: Female
  Weight: 53.5244 kg

DRUGS (1)
  1. KENALOG [Suspect]
     Indication: MULTIPLE ALLERGIES
     Dosage: 1 INJECTION 1 TIME
     Dates: start: 20100601, end: 20100601

REACTIONS (2)
  - INJECTION SITE ATROPHY [None]
  - INJECTION SITE HAEMATOMA [None]
